FAERS Safety Report 6806540-X (Version None)
Quarter: 2010Q2

REPORT INFORMATION
  Report Type: 
  Country: None (occurrence: None)
  Receive Date: 20100629
  Receipt Date: 20080410
  Transmission Date: 20101027
  Serious: No
  Sender: FDA-Public Use
  Company Number: US-PFIZER INC-2008023281

PATIENT
  Sex: Male

DRUGS (3)
  1. ALPRAZOLAM [Suspect]
     Indication: SLEEP DISORDER
     Dosage: 1-5 TABLETS
     Route: 048
     Dates: start: 20040701
  2. GABAPENTIN [Suspect]
     Indication: NEURALGIA
     Dosage: 1-3 TABLETS
     Route: 048
     Dates: start: 19980101
  3. ROZEREM [Suspect]
     Route: 048
     Dates: start: 20080205, end: 20080206

REACTIONS (5)
  - ANXIETY [None]
  - COELIAC DISEASE [None]
  - CRYING [None]
  - FEELING OF DESPAIR [None]
  - RESTLESSNESS [None]
